FAERS Safety Report 6337518-0 (Version None)
Quarter: 2009Q3

REPORT INFORMATION
  Report Type: 
  Country: None (occurrence: None)
  Receive Date: 20090902
  Receipt Date: 20090827
  Transmission Date: 20100115
  Serious: Yes (Death)
  Sender: FDA-Public Use
  Company Number: PHEH2009US03435

PATIENT
  Sex: Male

DRUGS (1)
  1. GLEEVEC [Suspect]

REACTIONS (1)
  - BRAIN NEOPLASM MALIGNANT [None]
